FAERS Safety Report 10717661 (Version 8)
Quarter: 2016Q4

REPORT INFORMATION
  Report Type: Report from Study
  Country: US (occurrence: US)
  Receive Date: 20150116
  Receipt Date: 20161122
  Transmission Date: 20170206
  Serious: No
  Sender: FDA-Public Use
  Company Number: US-GILEAD-2015-0131188

PATIENT
  Age: 55 Year
  Sex: Female

DRUGS (1)
  1. LEDIPASVIR/SOFOSBUVIR [Suspect]
     Active Substance: LEDIPASVIR\SOFOSBUVIR
     Indication: HEPATITIS C
     Dosage: 1 DF, QD
     Route: 048
     Dates: start: 20141201, end: 20150126

REACTIONS (34)
  - Abasia [Unknown]
  - Limb discomfort [Not Recovered/Not Resolved]
  - Pain in extremity [Unknown]
  - Anxiety [Recovering/Resolving]
  - Depression [Unknown]
  - Feeling abnormal [Unknown]
  - Onychomadesis [Unknown]
  - Nail discolouration [Unknown]
  - Muscle spasms [Not Recovered/Not Resolved]
  - Fatigue [Not Recovered/Not Resolved]
  - Therapeutic response unexpected [Unknown]
  - Disorientation [Not Recovered/Not Resolved]
  - Headache [Recovering/Resolving]
  - Peripheral swelling [Unknown]
  - Genital herpes [Unknown]
  - Back pain [Unknown]
  - Eye swelling [Unknown]
  - Chills [Unknown]
  - Arthralgia [Unknown]
  - Somnolence [Not Recovered/Not Resolved]
  - Vision blurred [Not Recovered/Not Resolved]
  - Nasopharyngitis [Recovered/Resolved]
  - Onychalgia [Unknown]
  - Panic attack [Unknown]
  - General physical condition abnormal [Unknown]
  - Visual acuity reduced [Unknown]
  - Unevaluable event [Unknown]
  - Pain [Unknown]
  - Lymphadenopathy [Unknown]
  - Dyspepsia [Not Recovered/Not Resolved]
  - Influenza like illness [Unknown]
  - Feeling abnormal [Recovered/Resolved]
  - Muscle spasms [Unknown]
  - Abdominal pain upper [Unknown]

NARRATIVE: CASE EVENT DATE: 20150109
